FAERS Safety Report 10405209 (Version 2)
Quarter: 2014Q4

REPORT INFORMATION
  Report Type: Spontaneous
  Country: JP (occurrence: JP)
  Receive Date: 20140825
  Receipt Date: 20141231
  Transmission Date: 20150528
  Serious: Yes (Death)
  Sender: FDA-Public Use
  Company Number: PHHY2014JP103107

PATIENT
  Age: 59 Year
  Sex: Female

DRUGS (1)
  1. GLIVEC [Suspect]
     Active Substance: IMATINIB MESYLATE
     Indication: CHRONIC MYELOID LEUKAEMIA
     Route: 048
     Dates: start: 200206

REACTIONS (1)
  - Acute lymphocytic leukaemia [Fatal]

NARRATIVE: CASE EVENT DATE: 200307
